FAERS Safety Report 9222451 (Version 3)
Quarter: 2013Q2

REPORT INFORMATION
  Report Type: Spontaneous
  Country: IT (occurrence: IT)
  Receive Date: 20130410
  Receipt Date: 20130515
  Transmission Date: 20140414
  Serious: Yes (Death, Life-Threatening)
  Sender: FDA-Public Use
  Company Number: IT-BRISTOL-MYERS SQUIBB COMPANY-18731992

PATIENT
  Age: 86 Year
  Sex: Male

DRUGS (4)
  1. COUMADIN TABS 5 MG [Suspect]
     Indication: ATRIAL FIBRILLATION
     Route: 048
     Dates: start: 20130101
  2. AMIODARONE HCL [Concomitant]
     Indication: ATRIAL FIBRILLATION
     Route: 048
  3. CARDIOASPIRIN [Concomitant]
     Indication: CARDIOMYOPATHY
     Route: 048
  4. LASIX [Concomitant]
     Indication: CARDIOMYOPATHY
     Route: 048

REACTIONS (2)
  - Cardiac failure [Fatal]
  - Incorrect dose administered [Fatal]
